FAERS Safety Report 12552033 (Version 1)
Quarter: 2016Q3

REPORT INFORMATION
  Report Type: Spontaneous
  Country: US (occurrence: None)
  Receive Date: 20160712
  Receipt Date: 20160712
  Transmission Date: 20161109
  Serious: Yes (Life-Threatening, Hospitalization)
  Sender: FDA-Public Use
  Company Number: None

PATIENT
  Age: 29 Year
  Sex: Female
  Weight: 60.2 kg

DRUGS (1)
  1. ASENAPINE [Suspect]
     Active Substance: ASENAPINE
     Indication: SCHIZOAFFECTIVE DISORDER
     Route: 048
     Dates: start: 20160710, end: 20160710

REACTIONS (7)
  - Cardiac arrest [None]
  - Chest discomfort [None]
  - Vomiting [None]
  - Fatigue [None]
  - Dyspnoea [None]
  - Sinus bradycardia [None]
  - Arrhythmia [None]

NARRATIVE: CASE EVENT DATE: 20160710
